FAERS Safety Report 8700010 (Version 2)
Quarter: 2012Q4

REPORT INFORMATION
  Report Type: 
  Country: US (occurrence: US)
  Receive Date: 20120802
  Receipt Date: 20120828
  Transmission Date: 20130627
  Serious: Yes (Other)
  Sender: FDA-Public Use
  Company Number: CHPA2012US016085

PATIENT
  Age: 76 Year
  Sex: Female

DRUGS (1)
  1. DESENEX PRESCRIPTIONSTRENGTH ANTIFPOWDER [Suspect]
     Indication: HYPERHIDROSIS
     Dosage: UNK, PRN
     Route: 061
     Dates: start: 1962

REACTIONS (4)
  - Cataract [Not Recovered/Not Resolved]
  - Tooth abscess [Unknown]
  - Hypertension [Not Recovered/Not Resolved]
  - Off label use [Unknown]
